FAERS Safety Report 8882366 (Version 5)
Quarter: 2013Q1

REPORT INFORMATION
  Report Type: Spontaneous
  Country: US (occurrence: US)
  Receive Date: 20121102
  Receipt Date: 20130124
  Transmission Date: 20140127
  Serious: Yes (Hospitalization, Other)
  Sender: FDA-Public Use
  Company Number: US-009507513-1210USA011614

PATIENT
  Sex: Male

DRUGS (3)
  1. PEG-INTRON [Suspect]
     Indication: HEPATITIS C
     Dosage: UNK
     Dates: start: 20121019, end: 20121227
  2. RIBAVIRIN [Suspect]
     Indication: HEPATITIS C
     Dosage: UNK
     Route: 048
     Dates: start: 20121019, end: 20121227
  3. TELAPREVIR [Suspect]
     Indication: HEPATITIS C
     Dosage: UNK
     Dates: start: 20121019, end: 20121227

REACTIONS (27)
  - Anaemia [Unknown]
  - Platelet count decreased [Unknown]
  - Injection site reaction [Unknown]
  - Asthenia [Unknown]
  - Headache [Unknown]
  - Pain [Unknown]
  - Erythema [Unknown]
  - Constipation [Unknown]
  - Headache [Unknown]
  - Nausea [Unknown]
  - Influenza like illness [Unknown]
  - Pyrexia [Unknown]
  - Nausea [Unknown]
  - Muscle spasms [Unknown]
  - Anaemia [Unknown]
  - Fatigue [Unknown]
  - Pulse abnormal [Unknown]
  - Fatigue [Unknown]
  - Malaise [Unknown]
  - Dyspnoea [Unknown]
  - Anaemia [Unknown]
  - Injection site reaction [Unknown]
  - Dysgeusia [Unknown]
  - Decreased appetite [Unknown]
  - Decreased appetite [Unknown]
  - Dysgeusia [Unknown]
  - Injection site reaction [Unknown]
